FAERS Safety Report 6913618-9 (Version None)
Quarter: 2010Q3

REPORT INFORMATION
  Report Type: 
  Country: None (occurrence: None)
  Receive Date: 20100809
  Receipt Date: 20100729
  Transmission Date: 20110219
  Serious: Yes (Hospitalization, Other)
  Sender: FDA-Public Use
  Company Number: US-ENDO PHARMACEUTICALS INC.-OPER20100133

PATIENT
  Age: 57 Year
  Sex: Female

DRUGS (1)
  1. OPANA ER [Suspect]
     Indication: PRODUCT USED FOR UNKNOWN INDICATION
     Dosage: UNK

REACTIONS (6)
  - BRADYCARDIA [None]
  - DRUG ABUSE [None]
  - HALLUCINATION [None]
  - OVERDOSE [None]
  - UNRESPONSIVE TO STIMULI [None]
  - WITHDRAWAL SYNDROME [None]
